FAERS Safety Report 9189649 (Version 1)
Quarter: 2013Q1

REPORT INFORMATION
  Report Type: Spontaneous
  Country: US (occurrence: US)
  Receive Date: 20130326
  Receipt Date: 20130326
  Transmission Date: 20140127
  Serious: No
  Sender: FDA-Public Use
  Company Number: US-MYLANLABS-2012S1021520

PATIENT
  Age: 46 Year
  Sex: Female
  Weight: 70.31 kg

DRUGS (12)
  1. FENTANYL TRANSDERMAL SYSTEM [Suspect]
     Indication: PAIN
     Dosage: Q72H
     Route: 062
     Dates: start: 20120530
  2. FENTANYL TRANSDERMAL SYSTEM [Suspect]
     Indication: MIGRAINE
     Dosage: Q72H
     Route: 062
     Dates: start: 20120530
  3. GABAPENTIN [Concomitant]
  4. LAMOTRIGINE [Concomitant]
  5. TOPAMAX [Concomitant]
  6. LIPITOR [Concomitant]
  7. FLEXERIL [Concomitant]
  8. POTASSIUM CITRATE [Concomitant]
  9. FENTANYL TRANSDERMAL SYSTEM [Concomitant]
     Dosage: MALLINCKRODT^S
     Route: 062
     Dates: start: 20120530
  10. ACETYL-L-CARNITINE [Concomitant]
  11. MECLIZINE [Concomitant]
  12. VITAMIN D [Concomitant]
     Indication: MULTIPLE SCLEROSIS
     Dosage: HIGH DOSE (NOT SPECIFIED). NOT TAKEN TAKEN ON DAY OF EVENT.

REACTIONS (4)
  - Drug effect increased [Recovered/Resolved]
  - Vomiting [Recovered/Resolved]
  - Headache [Recovered/Resolved]
  - Feeling abnormal [Recovered/Resolved]
